FAERS Safety Report 25474854 (Version 2)
Quarter: 2025Q4

REPORT INFORMATION
  Report Type: Spontaneous
  Country: US (occurrence: US)
  Receive Date: 20250624
  Receipt Date: 20251229
  Transmission Date: 20260118
  Serious: No
  Sender: SANOFI AVENTIS
  Company Number: US-SA-2025SA176899

PATIENT
  Age: 76 Year
  Sex: Female
  Weight: 61.36 kg

DRUGS (16)
  1. DUPIXENT [Suspect]
     Active Substance: DUPILUMAB
     Indication: Dermatitis atopic
     Dosage: 2 DF, 1X
     Route: 058
     Dates: start: 20250613, end: 20250613
  2. DUPIXENT [Suspect]
     Active Substance: DUPILUMAB
     Indication: Dermatitis
     Dosage: 300 MG, QOW
     Route: 058
     Dates: start: 2025, end: 2025
  3. AMLODIPINE BESYLATE [Concomitant]
     Active Substance: AMLODIPINE BESYLATE
  4. METRONIDAZOLE [Concomitant]
     Active Substance: METRONIDAZOLE
  5. CLOBETASOL PROPIONATE [Concomitant]
     Active Substance: CLOBETASOL PROPIONATE
  6. NITROGLYCERIN [Concomitant]
     Active Substance: NITROGLYCERIN
  7. METHOCARBAMOL [Concomitant]
     Active Substance: METHOCARBAMOL
  8. CANDESARTAN CILEXETIL [Concomitant]
     Active Substance: CANDESARTAN CILEXETIL
  9. ESTRADIOL [Concomitant]
     Active Substance: ESTRADIOL
  10. TRIAMCINOLONE ACETONIDE [Concomitant]
     Active Substance: TRIAMCINOLONE ACETONIDE
  11. SYNTHROID [Concomitant]
     Active Substance: LEVOTHYROXINE SODIUM
  12. LORATADINE [Concomitant]
     Active Substance: LORATADINE
  13. VOLTAREN [Concomitant]
     Active Substance: DICLOFENAC SODIUM
  14. ROSUVASTATIN CALCIUM [Concomitant]
     Active Substance: ROSUVASTATIN CALCIUM
  15. CARVEDILOL [Concomitant]
     Active Substance: CARVEDILOL
  16. LORAZEPAM [Concomitant]
     Active Substance: LORAZEPAM

REACTIONS (3)
  - Dry eye [Recovering/Resolving]
  - Injection site reaction [Unknown]
  - Product use in unapproved indication [Unknown]

NARRATIVE: CASE EVENT DATE: 20250101
